FAERS Safety Report 7783723-6 (Version None)
Quarter: 2011Q3

REPORT INFORMATION
  Report Type: 
  Country: None (occurrence: None)
  Receive Date: 20110928
  Receipt Date: 20110926
  Transmission Date: 20111222
  Serious: Yes (Death, Hospitalization)
  Sender: FDA-Public Use
  Company Number: JP-B.I. PHARMACEUTICALS,INC./RIDGEFIELD-2011-BP-20381NB

PATIENT
  Sex: Male

DRUGS (9)
  1. FERROUS CITRATE [Concomitant]
     Indication: ANAEMIA
     Dosage: 100 MG
     Route: 048
     Dates: start: 20110518, end: 20110708
  2. PRADAXA [Suspect]
     Indication: ATRIAL FIBRILLATION
     Dosage: 220 MG
     Route: 048
     Dates: start: 20110518, end: 20110708
  3. ASPIRIN [Suspect]
     Indication: ATRIAL FIBRILLATION
     Dosage: 100 MG
     Route: 048
     Dates: start: 20091011, end: 20110708
  4. ALLOPURINOL [Concomitant]
     Indication: HYPERURICAEMIA
     Dosage: 200 MG
     Route: 048
     Dates: start: 20091011, end: 20110708
  5. ISOSORBIDE MONONITRATE [Concomitant]
     Indication: ANGINA PECTORIS
     Dosage: 60 MG
     Route: 048
     Dates: start: 20091011, end: 20110708
  6. DEPAKENE [Concomitant]
     Indication: EPILEPSY
     Dosage: 400 MG
     Route: 048
     Dates: start: 20110127, end: 20110708
  7. AMLODIN OD [Concomitant]
     Indication: HYPERTENSION
     Dosage: 5 MG
     Route: 048
     Dates: start: 20091011, end: 20110708
  8. HARNAL D [Concomitant]
     Indication: BENIGN PROSTATIC HYPERPLASIA
     Dosage: 0.2 MG
     Route: 048
     Dates: start: 20091011, end: 20110708
  9. ALLEGRA [Concomitant]
     Indication: PRURITUS GENERALISED
     Dosage: 120 MG
     Route: 048
     Dates: start: 20100429, end: 20110708

REACTIONS (3)
  - HAEMATEMESIS [None]
  - GASTRIC HAEMORRHAGE [None]
  - ANAEMIA [None]
